FAERS Safety Report 10933236 (Version 1)
Quarter: 2015Q1

REPORT INFORMATION
  Report Type: Spontaneous
  Country: FR (occurrence: FR)
  Receive Date: 20150320
  Receipt Date: 20150320
  Transmission Date: 20150721
  Serious: Yes (Hospitalization)
  Sender: FDA-Public Use
  Company Number: FR-ASTRAZENECA-2015SE24069

PATIENT
  Age: 14163 Day
  Sex: Male

DRUGS (12)
  1. METHADONE [Suspect]
     Active Substance: METHADONE HYDROCHLORIDE
     Route: 065
  2. INEXIUM [Suspect]
     Active Substance: ESOMEPRAZOLE
     Route: 048
  3. LEPTICUR [Suspect]
     Active Substance: TROPATEPINE HYDROCHLORIDE
     Route: 065
  4. GAVISCON [Concomitant]
     Active Substance: ALUMINUM HYDROXIDE\MAGNESIUM CARBONATE
  5. IMOVANE [Suspect]
     Active Substance: ZOPICLONE
     Route: 065
  6. THERALENE [Suspect]
     Active Substance: TRIMEPRAZINE
     Dosage: 30 GTT DAILY, 30 DROPS IN THE EVENING, METHADONE 20 MG IN THE MORNING
     Route: 065
  7. LOXAPAC [Suspect]
     Active Substance: LOXAPINE SUCCINATE
     Route: 065
  8. XEROQUEL [Suspect]
     Active Substance: QUETIAPINE FUMARATE
     Route: 048
  9. VALIUM [Suspect]
     Active Substance: DIAZEPAM
     Dosage: 15 DROPS IN THE MORNING, 10 DROPS AT NOON AND 25 DROPS IN THE EVENING, 50 GTT DAILY
     Route: 065
  10. DOLIPRANE [Suspect]
     Active Substance: ACETAMINOPHEN
     Dosage: IF NEEDED
     Route: 065
  11. TRANXENE T-TAB [Suspect]
     Active Substance: CLORAZEPATE DIPOTASSIUM
     Route: 065
     Dates: start: 20150112
  12. NICOPATCH [Concomitant]
     Active Substance: NICOTINE
     Dosage: STRENGTH: 50 MG PER 30 CM2, 21 MG EVERY DAY
     Route: 062

REACTIONS (2)
  - Poisoning deliberate [Recovered/Resolved]
  - Coma [Recovered/Resolved]

NARRATIVE: CASE EVENT DATE: 20150114
